FAERS Safety Report 4342423-5 (Version None)
Quarter: 2004Q2

REPORT INFORMATION
  Report Type: 
  Country: None (occurrence: None)
  Receive Date: 20040416
  Receipt Date: 20040406
  Transmission Date: 20050107
  Serious: Yes (Other)
  Sender: FDA-Public Use
  Company Number: 2004023520

PATIENT
  Age: 62 Year
  Sex: Female
  Weight: 68.0396 kg

DRUGS (5)
  1. NEURONTIN [Suspect]
     Indication: PELVIC PAIN
     Dates: start: 19990101, end: 19990101
  2. ATARAX [Suspect]
     Indication: PELVIC PAIN
     Dates: start: 19990101, end: 19990101
  3. HYDROXYZINE HYDROCHLORIDE (HYDROXYZINE HYDROZYCHLORIDE) [Suspect]
     Indication: ILL-DEFINED DISORDER
     Dosage: 300 MG (25MG INCREMENTS IN DIVIDED DOSES.), UNKNOWN
  4. METROPOL (METOPROLOL) [Suspect]
     Indication: ILL-DEFINED DISORDER
  5. ALL OTHER THERAPEUTIC PRODUCTS (ALL OTHER THERAPEUTIC PRODUCTS) [Suspect]
     Indication: ILL-DEFINED DISORDER

REACTIONS (10)
  - ANGIONEUROTIC OEDEMA [None]
  - CONTUSION [None]
  - DERMATITIS EXFOLIATIVE [None]
  - DYSPNOEA [None]
  - MULTIPLE ALLERGIES [None]
  - OEDEMA PERIPHERAL [None]
  - PHARMACEUTICAL PRODUCT COMPLAINT [None]
  - PITUITARY TUMOUR [None]
  - SINUSITIS [None]
  - URTICARIA [None]
